FAERS Safety Report 8174941-6 (Version None)
Quarter: 2012Q1

REPORT INFORMATION
  Report Type: 
  Country: None (occurrence: None)
  Receive Date: 20120229
  Receipt Date: 20110923
  Transmission Date: 20120608
  Serious: No
  Sender: FDA-Public Use
  Company Number: US-GLAXOSMITHKLINE-A0946089A

PATIENT
  Age: 48 Year
  Sex: Female

DRUGS (1)
  1. VALTREX [Suspect]
     Dosage: 500MG UNKNOWN
     Route: 065
     Dates: start: 20090107

REACTIONS (3)
  - HEADACHE [None]
  - BONE PAIN [None]
  - DRUG ADMINISTRATION ERROR [None]
